FAERS Safety Report 19781672 (Version 1)
Quarter: 2021Q3

REPORT INFORMATION
  Report Type: Spontaneous
  Country: US (occurrence: US)
  Receive Date: 20210902
  Receipt Date: 20210902
  Transmission Date: 20211014
  Serious: No
  Sender: FDA-Public Use
  Company Number: US-ENDO PHARMACEUTICALS INC-2021-001827

PATIENT
  Sex: Male
  Weight: 87.09 kg

DRUGS (2)
  1. PREDNISONE. [Suspect]
     Active Substance: PREDNISONE
     Indication: TINNITUS
     Dosage: 6 DF, TID
     Route: 065
     Dates: start: 202103
  2. PREDNISONE. [Suspect]
     Active Substance: PREDNISONE
     Dosage: 5 DF, TID
     Route: 065
     Dates: start: 202103

REACTIONS (3)
  - Anxiety [Unknown]
  - Off label use [Unknown]
  - Insomnia [Unknown]
